FAERS Safety Report 5787332-X (Version None)
Quarter: 2008Q2

REPORT INFORMATION
  Report Type: 
  Country: None (occurrence: None)
  Receive Date: 20080623
  Receipt Date: 20080623
  Transmission Date: 20081010
  Serious: Yes (Hospitalization, Other)
  Sender: FDA-Public Use
  Company Number: None

PATIENT
  Sex: Female
  Weight: 56.6996 kg

DRUGS (2)
  1. CARBAMAZEPINE [Suspect]
     Indication: HEADACHE
     Dosage: BID PO
     Route: 048
     Dates: start: 20060105, end: 20060215
  2. CARBAMAZEPINE [Suspect]
     Indication: OCCIPITAL NEURALGIA
     Dosage: BID PO
     Route: 048
     Dates: start: 20060105, end: 20060215

REACTIONS (1)
  - PSEUDOLYMPHOMA [None]
